FAERS Safety Report 10709504 (Version 1)
Quarter: 2015Q1

REPORT INFORMATION
  Report Type: Spontaneous
  Country: US (occurrence: None)
  Receive Date: 20150113
  Receipt Date: 20150113
  Transmission Date: 20150721
  Serious: Yes (Disabling)
  Sender: FDA-Public Use
  Company Number: None

PATIENT
  Age: 57 Year
  Sex: Female
  Weight: 62.14 kg

DRUGS (1)
  1. SULFAMETHOXAZOLE / TRIMETHOPRIM [Suspect]
     Active Substance: SULFAMETHOXAZOLE\TRIMETHOPRIM
     Indication: CYSTITIS
     Dosage: 1 TABLET
     Route: 048

REACTIONS (9)
  - Muscular weakness [None]
  - Myalgia [None]
  - Gait disturbance [None]
  - Nausea [None]
  - Vomiting [None]
  - Oropharyngeal pain [None]
  - Sinus headache [None]
  - Musculoskeletal stiffness [None]
  - Pain [None]

NARRATIVE: CASE EVENT DATE: 20141216
